FAERS Safety Report 5222762-6 (Version None)
Quarter: 2007Q1

REPORT INFORMATION
  Report Type: 
  Country: None (occurrence: None)
  Receive Date: 20061208
  Receipt Date: 20060124
  Transmission Date: 20070707
  Serious: Yes (Other)
  Sender: FDA-Public Use
  Company Number: 2006011909

PATIENT
  Sex: Male
  Weight: 103.8737 kg

DRUGS (18)
  1. VIAGRA [Suspect]
     Indication: ERECTILE DYSFUNCTION
     Dosage: (AS NECESSARY), ORAL
     Route: 048
  2. IMDUR [Suspect]
     Indication: ANGINA PECTORIS
     Dosage: 180MG (60 MG, 3 IN 1 D), ORAL
     Route: 048
  3. ALDACTONE [Concomitant]
  4. ALTACE [Concomitant]
  5. ATENOLOL [Concomitant]
  6. BYETTA [Concomitant]
  7. FLONASE [Concomitant]
  8. // [Concomitant]
  9. FOLTX (CYANOCOBALAMIN, FOLIC ACID, PYRIDOXINE) [Concomitant]
  10. GLYBURIDE [Concomitant]
  11. LANOXIN [Concomitant]
  12. LASIX [Concomitant]
  13. LIPITOR [Concomitant]
  14. METFORMIN HCL [Concomitant]
  15. TRICOR [Concomitant]
  16. WARFARIN SODIUM [Concomitant]
  17. ZYLOPRIM [Concomitant]
  18. NITROGLYCERIN [Concomitant]

REACTIONS (4)
  - BLOOD PRESSURE DECREASED [None]
  - DIZZINESS [None]
  - DRUG INTERACTION [None]
  - PRESYNCOPE [None]
